FAERS Safety Report 5271601-6 (Version None)
Quarter: 2007Q1

REPORT INFORMATION
  Report Type: 
  Country: None (occurrence: None)
  Receive Date: 20070316
  Receipt Date: 20070309
  Transmission Date: 20070707
  Serious: Yes (Hospitalization, Other)
  Sender: FDA-Public Use
  Company Number: 163-21880-07010309

PATIENT
  Age: 67 Year
  Sex: Female

DRUGS (11)
  1. REVLIMID [Suspect]
     Indication: WALDENSTROM'S MACROGLOBULINAEMIA
     Dosage: 25 MG, 1 IN 1 D, ORAL
     Route: 048
     Dates: start: 20061202, end: 20061218
  2. DECADRON [Suspect]
     Indication: WALDENSTROM'S MACROGLOBULINAEMIA
  3. VALTREX [Concomitant]
  4. DAPSONE [Concomitant]
  5. NEXIUM [Concomitant]
  6. FOSAMAX [Concomitant]
  7. ASPIRIN [Concomitant]
  8. DETRAL UA (TOLTERODINE L-TARTRATE) [Concomitant]
  9. STOOL SOFTENER (DOCUSATE SODIUM) [Concomitant]
  10. ULTRAM [Concomitant]
  11. AMBIEN [Concomitant]

REACTIONS (8)
  - ANOREXIA [None]
  - DEHYDRATION [None]
  - DISORIENTATION [None]
  - HEPATIC FUNCTION ABNORMAL [None]
  - HYPOTENSION [None]
  - JAUNDICE [None]
  - MALNUTRITION [None]
  - WEIGHT DECREASED [None]
